FAERS Safety Report 11140408 (Version 1)
Quarter: 2015Q2

REPORT INFORMATION
  Report Type: Spontaneous
  Country: GB (occurrence: GB)
  Receive Date: 20150527
  Receipt Date: 20150527
  Transmission Date: 20150821
  Serious: Yes (Other)
  Sender: FDA-Public Use
  Company Number: GB-TEVA-565052ACC

PATIENT
  Age: 40 Year
  Sex: Female
  Weight: 64.41 kg

DRUGS (1)
  1. TRIMETHOPRIM. [Suspect]
     Active Substance: TRIMETHOPRIM
     Indication: URINARY TRACT INFECTION
     Route: 048

REACTIONS (3)
  - Throat tightness [Unknown]
  - Skin exfoliation [Recovered/Resolved]
  - Dysuria [Unknown]
